FAERS Safety Report 20051493 (Version 1)
Quarter: 2021Q4

REPORT INFORMATION
  Report Type: Spontaneous
  Country: PT (occurrence: PT)
  Receive Date: 20211110
  Receipt Date: 20211110
  Transmission Date: 20220303
  Serious: Yes (Other)
  Sender: FDA-Public Use
  Company Number: PT-GILEAD-2021-0555179

PATIENT
  Age: 51 Year
  Sex: Male

DRUGS (8)
  1. TRUVADA [Suspect]
     Active Substance: EMTRICITABINE\TENOFOVIR DISOPROXIL FUMARATE
     Indication: HIV infection
     Dosage: UNK
     Route: 065
     Dates: start: 2007
  2. ATAZANAVIR\RITONAVIR [Concomitant]
     Active Substance: ATAZANAVIR\RITONAVIR
     Dosage: UNK
     Dates: start: 2007
  3. DOLUTEGRAVIR [Concomitant]
     Active Substance: DOLUTEGRAVIR
     Dosage: UNK
     Dates: start: 2016
  4. METHADONE [Concomitant]
     Active Substance: METHADONE HYDROCHLORIDE
  5. MIRTAZAPINE [Concomitant]
     Active Substance: MIRTAZAPINE
  6. ALPRAZOLAM [Concomitant]
     Active Substance: ALPRAZOLAM
  7. QUETIAPINE [Concomitant]
     Active Substance: QUETIAPINE
  8. LORAZEPAM [Concomitant]
     Active Substance: LORAZEPAM

REACTIONS (3)
  - Chronic kidney disease [Unknown]
  - Hepatitis C [Unknown]
  - Treatment failure [Unknown]

NARRATIVE: CASE EVENT DATE: 20190101
